FAERS Safety Report 5683132-X (Version None)
Quarter: 2008Q1

REPORT INFORMATION
  Report Type: 
  Country: None (occurrence: None)
  Receive Date: 20080327
  Receipt Date: 20080319
  Transmission Date: 20080703
  Serious: Yes (Other)
  Sender: FDA-Public Use
  Company Number: JP-ELI_LILLY_AND_COMPANY-JP200803005736

PATIENT
  Age: 17 Year
  Sex: Female

DRUGS (1)
  1. HUMATROPE [Suspect]
     Indication: TURNER'S SYNDROME

REACTIONS (1)
  - EPIPHYSIOLYSIS [None]
